FAERS Safety Report 10649812 (Version 1)
Quarter: 2014Q4

REPORT INFORMATION
  Report Type: Report from Study
  Country: FR (occurrence: FR)
  Receive Date: 20141212
  Receipt Date: 20141212
  Transmission Date: 20150529
  Serious: Yes (Death, Hospitalization, Other)
  Sender: FDA-Public Use
  Company Number: PHHY2014FR160539

PATIENT
  Age: 37 Year
  Sex: Male
  Weight: 86.5 kg

DRUGS (4)
  1. ATGAM [Suspect]
     Active Substance: EQUINE THYMOCYTE IMMUNE GLOBULIN
     Indication: APLASTIC ANAEMIA
     Dosage: 40 MG/KG, QD
     Route: 042
     Dates: start: 20130928, end: 20131001
  2. PERFALGAN [Concomitant]
     Active Substance: ACETAMINOPHEN
     Indication: PREMEDICATION
     Dosage: UNK
     Route: 065
  3. HYDROCORTISONE HEMISUCCINATE [Concomitant]
     Active Substance: HYDROCORTISONE HEMISUCCINATE
     Indication: PREMEDICATION
     Dosage: UNK
     Route: 065
  4. CICLOSPORIN [Suspect]
     Active Substance: CYCLOSPORINE
     Indication: APLASTIC ANAEMIA
     Dosage: 3 MG/KG, QD
     Route: 042

REACTIONS (27)
  - Bronchospasm [Unknown]
  - Epstein-Barr virus infection [Unknown]
  - Sinus tachycardia [Unknown]
  - Blood glucose increased [Unknown]
  - Hypothermia [Unknown]
  - Altered state of consciousness [Recovering/Resolving]
  - Nosocomial infection [Unknown]
  - Meningoencephalitis herpetic [Unknown]
  - Myoclonic epilepsy [Unknown]
  - Pulmonary sepsis [Unknown]
  - Treatment failure [Unknown]
  - Agitation [Unknown]
  - Hypoxia [Recovering/Resolving]
  - Cerebrovascular disorder [Unknown]
  - Death [Fatal]
  - Anxiety [Unknown]
  - Neurological decompensation [Recovering/Resolving]
  - Renal failure [Unknown]
  - Infection [Unknown]
  - Acidosis [Unknown]
  - Pain [Unknown]
  - Leukopenia [Unknown]
  - Lung infection [Unknown]
  - Cardio-respiratory arrest [Unknown]
  - Disorientation [Unknown]
  - Hypoventilation [Recovering/Resolving]
  - Platelet count decreased [Unknown]

NARRATIVE: CASE EVENT DATE: 20131007
